FAERS Safety Report 8520789-X (Version None)
Quarter: 2012Q3

REPORT INFORMATION
  Report Type: 
  Country: None (occurrence: None)
  Receive Date: 20120719
  Receipt Date: 20120711
  Transmission Date: 20120928
  Serious: No
  Sender: FDA-Public Use
  Company Number: US-BAYER-2012-070574

PATIENT
  Age: 78 Year
  Sex: Male
  Weight: 124 kg

DRUGS (2)
  1. ALEVE (CAPLET) [Suspect]
     Indication: ANALGESIC THERAPY
     Dosage: 2 DF, QD
     Route: 048
     Dates: start: 20120708, end: 20120710
  2. ANTIHYPERTENSIVES [Concomitant]

REACTIONS (1)
  - HYPERTENSION [None]
